FAERS Safety Report 17365221 (Version 1)
Quarter: 2020Q1

REPORT INFORMATION
  Report Type: Spontaneous
  Country: DE (occurrence: DE)
  Receive Date: 20200204
  Receipt Date: 20200204
  Transmission Date: 20200409
  Serious: Yes (Other)
  Sender: FDA-Public Use
  Company Number: DE-ASTRAZENECA-2020SE15706

PATIENT
  Sex: Male

DRUGS (1)
  1. BRILIQUE [Suspect]
     Active Substance: TICAGRELOR
     Route: 048

REACTIONS (6)
  - Fluid retention [Unknown]
  - Joint swelling [Unknown]
  - Arthralgia [Unknown]
  - Device occlusion [Unknown]
  - Dyspnoea [Unknown]
  - Feeling hot [Unknown]
